FAERS Safety Report 17889405 (Version 1)
Quarter: 2020Q2

REPORT INFORMATION
  Report Type: Spontaneous
  Country: US (occurrence: US)
  Receive Date: 20200612
  Receipt Date: 20200612
  Transmission Date: 20200714
  Serious: Yes (Hospitalization, Disabling)
  Sender: FDA-Public Use
  Company Number: None

PATIENT
  Sex: Female
  Weight: 75.3 kg

DRUGS (6)
  1. AMLODIPINE BESYLATE. [Concomitant]
     Active Substance: AMLODIPINE BESYLATE
  2. CALCIUM CTRATE VITAMIN D3 [Concomitant]
  3. SIMVASTATIN. [Suspect]
     Active Substance: SIMVASTATIN
     Indication: BLOOD CHOLESTEROL
     Dosage: ?          QUANTITY:1/2 PILL DAILY;?
     Route: 048
     Dates: start: 2016, end: 20180130
  4. BENAZEPRIL [Concomitant]
     Active Substance: BENAZEPRIL HYDROCHLORIDE
  5. VITAMIN C [Concomitant]
     Active Substance: ASCORBIC ACID
  6. VERAPAMIL 40MG [Suspect]
     Active Substance: VERAPAMIL HYDROCHLORIDE

REACTIONS (5)
  - Insurance issue [None]
  - Flank pain [None]
  - Back pain [None]
  - Muscle spasms [None]
  - Cholelithotomy [None]
